FAERS Safety Report 19514510 (Version 1)
Quarter: 2021Q3

REPORT INFORMATION
  Report Type: Spontaneous
  Country: US (occurrence: US)
  Receive Date: 20210710
  Receipt Date: 20210710
  Transmission Date: 20211014
  Serious: Yes (Other)
  Sender: FDA-Public Use
  Company Number: US-JNJFOC-20210703770

PATIENT

DRUGS (1)
  1. IBUPROFEN. [Suspect]
     Active Substance: IBUPROFEN
     Indication: BACK PAIN
     Route: 065

REACTIONS (21)
  - Anaphylactic reaction [Unknown]
  - Swelling [Unknown]
  - Serum sickness [Unknown]
  - Angioedema [Unknown]
  - Rash [Unknown]
  - Hypotension [Unknown]
  - Abdominal discomfort [Unknown]
  - Vomiting [Unknown]
  - Headache [Unknown]
  - Adverse drug reaction [Unknown]
  - Nephropathy toxic [Unknown]
  - Urticaria [Unknown]
  - Nausea [Unknown]
  - Pruritus [Unknown]
  - Drug use disorder [Unknown]
  - Haemorrhage [Unknown]
  - Dizziness [Unknown]
  - Mental status changes [Unknown]
  - Drug hypersensitivity [Unknown]
  - Bronchospasm [Unknown]
  - Wheezing [Unknown]
